FAERS Safety Report 20392758 (Version 1)
Quarter: 2022Q1

REPORT INFORMATION
  Report Type: Spontaneous
  Country: US (occurrence: None)
  Receive Date: 20220128
  Receipt Date: 20220128
  Transmission Date: 20220423
  Serious: No
  Sender: FDA-Public Use
  Company Number: None

PATIENT
  Age: 27 Year
  Sex: Male
  Weight: 102.6 kg

DRUGS (2)
  1. VIVITROL [Suspect]
     Active Substance: NALTREXONE
     Dosage: OTHER FREQUENCY : 1 ONCE Q 26-28DAYS;?
     Route: 030
     Dates: start: 20220117
  2. VIVITROL [Concomitant]
     Active Substance: NALTREXONE
     Dates: start: 20220117

REACTIONS (3)
  - Injection site swelling [None]
  - Injection site erythema [None]
  - Injection site pain [None]

NARRATIVE: CASE EVENT DATE: 20220117
